FAERS Safety Report 5374379-0 (Version None)
Quarter: 2007Q2

REPORT INFORMATION
  Report Type: 
  Country: None (occurrence: None)
  Receive Date: 20070629
  Receipt Date: 20060508
  Transmission Date: 20071010
  Serious: Yes (Other)
  Sender: FDA-Public Use
  Company Number: A0604666A

PATIENT
  Age: 73 Year
  Sex: Female

DRUGS (4)
  1. VENTOLIN [Suspect]
     Indication: EMPHYSEMA
     Route: 055
     Dates: end: 20000101
  2. SEREVENT [Suspect]
     Indication: CHRONIC OBSTRUCTIVE PULMONARY DISEASE
     Dosage: 1PUFF TWICE PER DAY
     Route: 055
  3. ATROVENT [Concomitant]
  4. SPIRIVA [Concomitant]

REACTIONS (3)
  - ASTHMA [None]
  - DRUG INEFFECTIVE [None]
  - SUFFOCATION FEELING [None]
